FAERS Safety Report 8160238-7 (Version None)
Quarter: 2012Q1

REPORT INFORMATION
  Report Type: 
  Country: None (occurrence: None)
  Receive Date: 20120223
  Receipt Date: 20120220
  Transmission Date: 20120608
  Serious: Yes (Other)
  Sender: FDA-Public Use
  Company Number: US-PFIZER INC-2012045085

PATIENT
  Sex: Female

DRUGS (1)
  1. PRISTIQ [Suspect]
     Dosage: 50 MG, ALTERNATE DAY
     Route: 048
     Dates: start: 20120101, end: 20120101

REACTIONS (7)
  - AGITATION [None]
  - PRODUCTIVE COUGH [None]
  - ANGER [None]
  - WITHDRAWAL SYNDROME [None]
  - CRYING [None]
  - SUICIDAL IDEATION [None]
  - VOMITING [None]
